FAERS Safety Report 18254685 (Version 1)
Quarter: 2020Q3

REPORT INFORMATION
  Report Type: Spontaneous
  Country: IT (occurrence: IT)
  Receive Date: 20200910
  Receipt Date: 20200910
  Transmission Date: 20201103
  Serious: Yes (Hospitalization)
  Sender: FDA-Public Use
  Company Number: IT-MYLANLABS-2020M1076780

PATIENT
  Age: 86 Year
  Sex: Female
  Weight: 80 kg

DRUGS (8)
  1. METFORMIN [Suspect]
     Active Substance: METFORMIN HYDROCHLORIDE
     Indication: TYPE 2 DIABETES MELLITUS
     Dosage: 2000 MILLIGRAM, QD
     Route: 048
  2. ANASTROZOLE. [Concomitant]
     Active Substance: ANASTROZOLE
     Dosage: UNK
  3. ALLOPURINOL. [Concomitant]
     Active Substance: ALLOPURINOL
     Dosage: UNK
  4. CANAGLIFLOZIN [Concomitant]
     Active Substance: CANAGLIFLOZIN
     Dosage: UNK
  5. CANDESARTAN/ IDROCLOROTIAZIDE DOC [Concomitant]
     Dosage: UNK
  6. TOTALIP [Concomitant]
     Active Substance: ATORVASTATIN
     Dosage: UNK
  7. LANSOX [Concomitant]
     Active Substance: LANSOPRAZOLE
     Dosage: UNK
  8. CARDIOASPIRIN [Concomitant]
     Active Substance: ASPIRIN
     Dosage: UNK

REACTIONS (2)
  - Acute kidney injury [Unknown]
  - Lactic acidosis [Unknown]

NARRATIVE: CASE EVENT DATE: 20200710
